FAERS Safety Report 6848437-5 (Version None)
Quarter: 2010Q3

REPORT INFORMATION
  Report Type: 
  Country: None (occurrence: None)
  Receive Date: 20100716
  Receipt Date: 20100713
  Transmission Date: 20110219
  Serious: Yes (Other)
  Sender: FDA-Public Use
  Company Number: HR-MERCK-1007USA01491

PATIENT
  Age: 60 Year
  Sex: Female
  Weight: 83 kg

DRUGS (3)
  1. JANUVIA [Suspect]
     Indication: DIABETES MELLITUS
     Route: 048
     Dates: start: 20100301, end: 20100401
  2. PRINIVIL [Concomitant]
     Indication: HYPERTENSION
     Route: 048
     Dates: start: 20000101
  3. GLUFORMIN [Concomitant]
     Indication: DIABETES MELLITUS
     Route: 048
     Dates: start: 20100301

REACTIONS (3)
  - ANGIOEDEMA [None]
  - BACK PAIN [None]
  - OLIGURIA [None]
